FAERS Safety Report 21311474 (Version 1)
Quarter: 2022Q3

REPORT INFORMATION
  Report Type: Spontaneous
  Country: US (occurrence: None)
  Receive Date: 20220908
  Receipt Date: 20220908
  Transmission Date: 20221027
  Serious: Yes (Hospitalization)
  Sender: FDA-Public Use
  Company Number: None

PATIENT
  Age: 71 Year
  Sex: Female
  Weight: 123.97 kg

DRUGS (9)
  1. IBRANCE [Suspect]
     Active Substance: PALBOCICLIB
     Indication: Breast cancer female
     Dosage: OTHER FREQUENCY : 3W, 1W OFF;?
  2. BENZONATA [Concomitant]
  3. DULOXETINE HCI [Concomitant]
  4. ENALAPRIL MALEATE [Concomitant]
  5. LETROZOLE [Concomitant]
  6. LORAZEPAM [Concomitant]
  7. METFORMIN HCI [Concomitant]
  8. MIRTAZAPINE [Concomitant]
  9. OMEPRAZOLE [Concomitant]

REACTIONS (2)
  - Rib fracture [None]
  - Road traffic accident [None]
